FAERS Safety Report 9507819 (Version 4)
Quarter: 2013Q4

REPORT INFORMATION
  Report Type: Spontaneous
  Country: PA (occurrence: PA)
  Receive Date: 20130909
  Receipt Date: 20131120
  Transmission Date: 20140711
  Serious: Yes (Death, Other)
  Sender: FDA-Public Use
  Company Number: PA-PFIZER INC-2013258240

PATIENT
  Age: 35 Year
  Sex: Female

DRUGS (3)
  1. CHAMPIX [Suspect]
     Indication: SMOKING CESSATION THERAPY
     Dosage: 1 MG, 2X/DAY
     Route: 048
     Dates: start: 20130815
  2. QUETIAPINE [Suspect]
     Indication: PERSONALITY DISORDER
     Dosage: 50 MG, 1X/DAY
     Dates: start: 201109
  3. RIVOTRIL [Suspect]
     Indication: PERSONALITY DISORDER
     Dosage: 1 MG, 2X/DAY

REACTIONS (2)
  - Completed suicide [Fatal]
  - Toxicity to various agents [Fatal]
